FAERS Safety Report 8983165 (Version 1)
Quarter: 2012Q4

REPORT INFORMATION
  Report Type: Report from Study
  Country: DE (occurrence: NL)
  Receive Date: 20121224
  Receipt Date: 20121224
  Transmission Date: 20130627
  Serious: Yes (Hospitalization, Other)
  Sender: FDA-Public Use
  Company Number: NL-ASTELLAS-2012EU011036

PATIENT
  Age: 44 Year
  Sex: Male
  Weight: 59.4 kg

DRUGS (7)
  1. TACROLIMUS SYSTEMIC [Suspect]
     Indication: RENAL TRANSPLANT
     Dosage: 2 mg, Unknown/D
     Route: 065
     Dates: start: 20081112
  2. RITUXIMAB [Suspect]
     Indication: RENAL TRANSPLANT
     Dosage: UNK
     Route: 042
     Dates: start: 20081111
  3. MYCOPHENOLATE MOFETIL [Suspect]
     Indication: RENAL TRANSPLANT
     Dosage: 1500 mg, Unknown/D
     Route: 065
     Dates: start: 20081112, end: 20090209
  4. PREDNISONE [Suspect]
     Indication: RENAL TRANSPLANT
     Dosage: 20 mg, Unknown/D
     Route: 065
     Dates: start: 20081111
  5. COTRIMOXAZOLE [Concomitant]
     Dosage: 480 mg, Unknown/D
     Route: 065
     Dates: start: 20081112, end: 20090216
  6. METOPROLOL [Concomitant]
     Dosage: 200 mg, Unknown/D
     Route: 065
     Dates: start: 20081111
  7. VALGANCICLOVIR [Concomitant]
     Dosage: 450 mg, Unknown/D
     Route: 065
     Dates: start: 20081112, end: 20090222

REACTIONS (2)
  - Oesophageal ulcer [Not Recovered/Not Resolved]
  - Viral infection [Not Recovered/Not Resolved]
